FAERS Safety Report 10622600 (Version 1)
Quarter: 2014Q4

REPORT INFORMATION
  Report Type: Spontaneous
  Country: PT (occurrence: PT)
  Receive Date: 20141203
  Receipt Date: 20141203
  Transmission Date: 20150529
  Serious: Yes (Life-Threatening, Other)
  Sender: FDA-Public Use
  Company Number: PT-ASTRAZENECA-2014SE90079

PATIENT
  Age: 29 Year
  Sex: Female
  Weight: 85 kg

DRUGS (3)
  1. SUFENTANIL [Suspect]
     Active Substance: SUFENTANIL
     Indication: EPIDURAL ANALGESIA
     Route: 008
  2. ROPIVACAINE [Suspect]
     Active Substance: ROPIVACAINE
     Indication: EPIDURAL ANALGESIA
     Dosage: (2MG/ML) 20MG
     Route: 008
  3. ROPIVACAINE [Suspect]
     Active Substance: ROPIVACAINE
     Indication: EPIDURAL ANALGESIA
     Dosage: (7.5MG/ML) 60MG
     Route: 008

REACTIONS (5)
  - Coma [Recovered/Resolved]
  - Pupils unequal [Recovered/Resolved]
  - Respiratory depression [Recovered/Resolved]
  - Foetal heart rate decreased [Recovered/Resolved]
  - Anaesthetic complication [Recovered/Resolved]
